FAERS Safety Report 9243004 (Version 2)
Quarter: 2013Q2

REPORT INFORMATION
  Report Type: Spontaneous
  Country: JP (occurrence: JP)
  Receive Date: 20130419
  Receipt Date: 20130430
  Transmission Date: 20140414
  Serious: Yes (Other)
  Sender: FDA-Public Use
  Company Number: JP-009507513-1304JPN009092

PATIENT
  Age: 80 Year
  Sex: Male

DRUGS (7)
  1. GASTER [Suspect]
     Route: 048
  2. GRAMALIL [Suspect]
     Indication: PARKINSON^S DISEASE
     Route: 048
  3. MEMARY [Concomitant]
  4. RISPERDAL [Concomitant]
  5. LEVODOPA [Concomitant]
  6. LEVOTOMIN (LEVOMEPROMAZINE MALEATE) [Concomitant]
  7. LEDOLPER [Concomitant]

REACTIONS (1)
  - Blood pressure decreased [Recovered/Resolved]
